FAERS Safety Report 25238570 (Version 1)
Quarter: 2025Q2

REPORT INFORMATION
  Report Type: Other
  Country: GB (occurrence: GB)
  Receive Date: 20250425
  Receipt Date: 20250425
  Transmission Date: 20250717
  Serious: Yes (Hospitalization, Other)
  Sender: ZYDUS PHARM
  Company Number: None

PATIENT

DRUGS (2)
  1. APIXABAN [Suspect]
     Active Substance: APIXABAN
     Indication: Adverse drug reaction
     Route: 065
     Dates: start: 20250303, end: 20250408
  2. COCODAMOL [Concomitant]
     Active Substance: ACETAMINOPHEN\CODEINE PHOSPHATE
     Indication: Pain
     Route: 065
     Dates: start: 20000101

REACTIONS (4)
  - Anxiety [Recovered/Resolved]
  - Paranoia [Recovered/Resolved]
  - Dry mouth [Recovered/Resolved]
  - Heart rate [Recovered/Resolved]

NARRATIVE: CASE EVENT DATE: 20250410
